FAERS Safety Report 25394420 (Version 1)
Quarter: 2025Q2

REPORT INFORMATION
  Report Type: Other
  Country: IR (occurrence: IR)
  Receive Date: 20250604
  Receipt Date: 20250604
  Transmission Date: 20250717
  Serious: Yes (Hospitalization, Other)
  Sender: ALVOGEN
  Company Number: IR-ALVOGEN-2025098071

PATIENT
  Age: 14 Year
  Sex: Female

DRUGS (1)
  1. SERTRALINE [Suspect]
     Active Substance: SERTRALINE HYDROCHLORIDE
     Indication: Product used for unknown indication

REACTIONS (3)
  - Toxicity to various agents [Recovered/Resolved]
  - Seizure [Recovered/Resolved]
  - Overdose [Unknown]
